FAERS Safety Report 11845048 (Version 1)
Quarter: 2015Q4

REPORT INFORMATION
  Report Type: Spontaneous
  Country: None (occurrence: US)
  Receive Date: 20151217
  Receipt Date: 20151217
  Transmission Date: 20160305
  Serious: No
  Sender: FDA-Public Use
  Company Number: US-MEDAC PHARMA, INC.-1045602

PATIENT
  Age: 38 Year
  Sex: Female
  Weight: 99.09 kg

DRUGS (1)
  1. RASUVO [Suspect]
     Active Substance: METHOTREXATE SODIUM
     Indication: MULTIPLE SCLEROSIS
     Dates: start: 2015, end: 20151201

REACTIONS (3)
  - Product use issue [None]
  - No adverse event [None]
  - Accidental exposure to product [Recovered/Resolved]
